FAERS Safety Report 8975827 (Version 2)
Quarter: 2013Q1

REPORT INFORMATION
  Report Type: Spontaneous
  Country: US (occurrence: US)
  Receive Date: 20121219
  Receipt Date: 20130115
  Transmission Date: 20140127
  Serious: Yes (Hospitalization, Other)
  Sender: FDA-Public Use
  Company Number: CHPA2012US025064

PATIENT
  Age: 69 Year
  Sex: Female

DRUGS (1)
  1. MAALOX ANTACID/ANTIGAS MAX QDTABS ASST [Suspect]
     Indication: ULCER
     Dosage: 1 CHEWABLE, 1-3 TIMES DAILY

REACTIONS (7)
  - Infection [Unknown]
  - Myocardial infarction [Recovered/Resolved]
  - Ovarian cancer [Recovered/Resolved]
  - Chronic obstructive pulmonary disease [Not Recovered/Not Resolved]
  - Hiatus hernia [Not Recovered/Not Resolved]
  - Oral candidiasis [Recovered/Resolved]
  - Off label use [Unknown]
